FAERS Safety Report 15211133 (Version 1)
Quarter: 2018Q3

REPORT INFORMATION
  Report Type: Spontaneous
  Country: US (occurrence: US)
  Receive Date: 20180629
  Receipt Date: 20180629
  Transmission Date: 20181010
  Serious: Yes (Life-Threatening, Hospitalization)
  Sender: FDA-Public Use
  Company Number: None

PATIENT
  Age: 26 Year
  Sex: Female
  Weight: 58.5 kg

DRUGS (9)
  1. GABAPENTIN. [Concomitant]
     Active Substance: GABAPENTIN
  2. TIZANIDINE. [Concomitant]
     Active Substance: TIZANIDINE
  3. VENLAFAXINE [Concomitant]
     Active Substance: VENLAFAXINE HYDROCHLORIDE
  4. TOPAMAX [Concomitant]
     Active Substance: TOPIRAMATE
  5. VITAMIN D [Concomitant]
     Active Substance: CHOLECALCIFEROL
  6. SCOPALAMINE [Concomitant]
     Active Substance: SCOPOLAMINE
  7. OCRELUZIMAB [Suspect]
     Active Substance: OCRELIZUMAB
     Indication: MULTIPLE SCLEROSIS
     Dosage: ?          QUANTITY:1 VIAL;OTHER FREQUENCY:EVERY SIX MONTHS;?
     Route: 042
  8. ADDERALL [Concomitant]
     Active Substance: AMPHETAMINE ASPARTATE\AMPHETAMINE SULFATE\DEXTROAMPHETAMINE SACCHARATE\DEXTROAMPHETAMINE SULFATE
  9. AMPYRA [Concomitant]
     Active Substance: DALFAMPRIDINE

REACTIONS (8)
  - Infusion related reaction [None]
  - Psychiatric symptom [None]
  - Depression [None]
  - Throat tightness [None]
  - Chemical burn [None]
  - Suicidal ideation [None]
  - Dyspnoea [None]
  - Post-traumatic stress disorder [None]

NARRATIVE: CASE EVENT DATE: 20171128
